FAERS Safety Report 5351079-4 (Version None)
Quarter: 2007Q2

REPORT INFORMATION
  Report Type: 
  Country: None (occurrence: None)
  Receive Date: 20070608
  Receipt Date: 20070531
  Transmission Date: 20071010
  Serious: Yes (Other)
  Sender: FDA-Public Use
  Company Number: BR-PFIZER INC-2007004678

PATIENT
  Sex: Female
  Weight: 64 kg

DRUGS (4)
  1. DEPO-PROVERA SUSPENSION/INJ [Suspect]
     Indication: MENSTRUAL DISCOMFORT
     Route: 030
     Dates: start: 20061124, end: 20061124
  2. DEPO-PROVERA SUSPENSION/INJ [Suspect]
     Indication: CONTRACEPTION
     Route: 030
     Dates: start: 20070224, end: 20070224
  3. DESOGESTREL [Concomitant]
     Dosage: FREQ:ONCE DAY
     Route: 048
     Dates: start: 20060101, end: 20070121
  4. LEVONORGESTREL AND ETHINYL ESTRADIOL [Concomitant]
     Route: 048
     Dates: start: 20060101, end: 20060101

REACTIONS (12)
  - AMENORRHOEA [None]
  - ASTHENIA [None]
  - DIZZINESS [None]
  - DYSPEPSIA [None]
  - INCREASED APPETITE [None]
  - INSOMNIA [None]
  - IRRITABILITY [None]
  - MENOMETRORRHAGIA [None]
  - MOVEMENT DISORDER [None]
  - OEDEMA PERIPHERAL [None]
  - PARAESTHESIA [None]
  - WEIGHT INCREASED [None]
